FAERS Safety Report 10049364 (Version 3)
Quarter: 2018Q1

REPORT INFORMATION
  Report Type: Spontaneous
  Country: US (occurrence: US)
  Receive Date: 20140401
  Receipt Date: 20180330
  Transmission Date: 20180508
  Serious: Yes (Hospitalization, Other)
  Sender: FDA-Public Use
  Company Number: US-AMGEN-USASP2014012792

PATIENT
  Age: 77 Year
  Sex: Female

DRUGS (16)
  1. OSTEO BI-FLEX [Concomitant]
     Active Substance: CHONDROITIN SULFATE A\GLUCOSAMINE
  2. IRON [Concomitant]
     Active Substance: IRON
     Dosage: 325 MG, QD
  3. LORADINE [Concomitant]
     Dosage: 10 MG, QD
  4. LOSARTAN. [Concomitant]
     Active Substance: LOSARTAN
     Dosage: 25 MG, QD
  5. TIZANIDIN [Concomitant]
     Indication: MUSCLE SPASMS
     Dosage: 2 MG, QD
  6. OMEGA 3 [Concomitant]
     Active Substance: OMEGA-3 FATTY ACIDS
     Dosage: 2000 MG, QD
  7. RANITIDINE. [Concomitant]
     Active Substance: RANITIDINE
     Dosage: 150 MG, BID
  8. MONTELUKAST [Concomitant]
     Active Substance: MONTELUKAST SODIUM
     Dosage: 10 MG, QD
  9. QVAR [Concomitant]
     Active Substance: BECLOMETHASONE DIPROPIONATE
     Dosage: 80 MUG, UNK
     Route: 045
  10. VITAMIN C COMPLEX [Concomitant]
     Dosage: 500 UNK, QD
  11. ATORVASTATIN [Concomitant]
     Active Substance: ATORVASTATIN
     Dosage: 20 MG, QD
  12. VSL 3 PROBIOTIC [Concomitant]
  13. PROLIA [Suspect]
     Active Substance: DENOSUMAB
     Indication: OSTEOPOROSIS POSTMENOPAUSAL
     Dosage: 60 MG, Q6MO
     Route: 065
     Dates: start: 20131104
  14. COLCHICINE. [Concomitant]
     Active Substance: COLCHICINE
     Dosage: 0.6 MG, TID
  15. OMEPRAZOLE. [Concomitant]
     Active Substance: OMEPRAZOLE
     Dosage: 20 MG, BID
  16. METOPROLOL. [Concomitant]
     Active Substance: METOPROLOL
     Dosage: 25 MG, QD

REACTIONS (9)
  - Fall [Unknown]
  - Contusion [Recovered/Resolved]
  - Dermatitis herpetiformis [Unknown]
  - Abscess [Unknown]
  - Swelling [Unknown]
  - Skin reaction [Unknown]
  - Asthenia [Unknown]
  - Clostridium difficile infection [Unknown]
  - Pruritus [Unknown]

NARRATIVE: CASE EVENT DATE: 2014
